FAERS Safety Report 25714215 (Version 1)
Quarter: 2025Q3

REPORT INFORMATION
  Report Type: Spontaneous
  Country: CN (occurrence: CN)
  Receive Date: 20250822
  Receipt Date: 20250822
  Transmission Date: 20251020
  Serious: Yes (Life-Threatening, Other)
  Sender: BAXTER
  Company Number: CN-MLMSERVICE-20250807-PI605747-00128-4

PATIENT
  Age: 62 Year
  Sex: Male

DRUGS (65)
  1. CYCLOPHOSPHAMIDE [Suspect]
     Active Substance: CYCLOPHOSPHAMIDE
     Indication: Diffuse large B-cell lymphoma stage IV
     Route: 065
     Dates: start: 2020, end: 2020
  2. CYCLOPHOSPHAMIDE [Suspect]
     Active Substance: CYCLOPHOSPHAMIDE
     Indication: Metastases to spine
     Route: 065
     Dates: start: 2020, end: 2020
  3. CYCLOPHOSPHAMIDE [Suspect]
     Active Substance: CYCLOPHOSPHAMIDE
     Indication: Metastases to pancreas
     Route: 065
     Dates: start: 2020, end: 2020
  4. CYCLOPHOSPHAMIDE [Suspect]
     Active Substance: CYCLOPHOSPHAMIDE
     Indication: Metastases to pleura
  5. CYCLOPHOSPHAMIDE [Suspect]
     Active Substance: CYCLOPHOSPHAMIDE
     Indication: Metastases to lymph nodes
  6. CYCLOPHOSPHAMIDE [Suspect]
     Active Substance: CYCLOPHOSPHAMIDE
     Indication: Metastases to abdominal cavity
  7. DOXORUBICIN [Suspect]
     Active Substance: DOXORUBICIN
     Indication: Diffuse large B-cell lymphoma stage IV
     Route: 065
     Dates: start: 2020, end: 2020
  8. DOXORUBICIN [Suspect]
     Active Substance: DOXORUBICIN
     Indication: Metastases to spine
     Route: 065
     Dates: start: 2020, end: 2020
  9. DOXORUBICIN [Suspect]
     Active Substance: DOXORUBICIN
     Indication: Metastases to pancreas
     Route: 065
     Dates: start: 2020, end: 2020
  10. DOXORUBICIN [Suspect]
     Active Substance: DOXORUBICIN
     Indication: Metastases to pleura
  11. DOXORUBICIN [Suspect]
     Active Substance: DOXORUBICIN
     Indication: Metastases to lymph nodes
  12. DOXORUBICIN [Suspect]
     Active Substance: DOXORUBICIN
     Indication: Metastases to abdominal cavity
  13. RITUXIMAB [Suspect]
     Active Substance: RITUXIMAB
     Indication: Diffuse large B-cell lymphoma stage IV
     Route: 065
     Dates: start: 2020
  14. RITUXIMAB [Suspect]
     Active Substance: RITUXIMAB
     Indication: Metastases to spine
     Route: 065
     Dates: start: 2020
  15. RITUXIMAB [Suspect]
     Active Substance: RITUXIMAB
     Indication: Metastases to pancreas
     Route: 065
     Dates: start: 2020
  16. RITUXIMAB [Suspect]
     Active Substance: RITUXIMAB
     Indication: Metastases to pleura
     Route: 065
     Dates: start: 2020
  17. RITUXIMAB [Suspect]
     Active Substance: RITUXIMAB
     Indication: Metastases to lymph nodes
     Route: 065
     Dates: start: 2020
  18. RITUXIMAB [Suspect]
     Active Substance: RITUXIMAB
     Indication: Metastases to abdominal cavity
  19. VINCRISTINE [Suspect]
     Active Substance: VINCRISTINE
     Indication: Diffuse large B-cell lymphoma stage IV
     Route: 065
     Dates: start: 2020, end: 2020
  20. VINCRISTINE [Suspect]
     Active Substance: VINCRISTINE
     Indication: Metastases to spine
     Route: 065
     Dates: start: 2020, end: 2020
  21. VINCRISTINE [Suspect]
     Active Substance: VINCRISTINE
     Indication: Metastases to pancreas
  22. VINCRISTINE [Suspect]
     Active Substance: VINCRISTINE
     Indication: Metastases to pleura
  23. VINCRISTINE [Suspect]
     Active Substance: VINCRISTINE
     Indication: Metastases to lymph nodes
  24. PREDNISONE [Suspect]
     Active Substance: PREDNISONE
     Indication: Diffuse large B-cell lymphoma stage IV
     Route: 065
     Dates: start: 2020, end: 2020
  25. PREDNISONE [Suspect]
     Active Substance: PREDNISONE
     Indication: Metastases to spine
     Route: 065
     Dates: start: 2020, end: 2020
  26. PREDNISONE [Suspect]
     Active Substance: PREDNISONE
     Indication: Metastases to pancreas
  27. PREDNISONE [Suspect]
     Active Substance: PREDNISONE
     Indication: Metastases to pleura
  28. PREDNISONE [Suspect]
     Active Substance: PREDNISONE
     Indication: Metastases to lymph nodes
  29. ETOPOSIDE [Suspect]
     Active Substance: ETOPOSIDE
     Indication: Diffuse large B-cell lymphoma stage IV
     Route: 065
     Dates: start: 2020, end: 2020
  30. ETOPOSIDE [Suspect]
     Active Substance: ETOPOSIDE
     Indication: Metastases to spine
  31. ETOPOSIDE [Suspect]
     Active Substance: ETOPOSIDE
     Indication: Metastases to pancreas
  32. ETOPOSIDE [Suspect]
     Active Substance: ETOPOSIDE
     Indication: Metastases to pleura
  33. ETOPOSIDE [Suspect]
     Active Substance: ETOPOSIDE
     Indication: Metastases to lymph nodes
  34. VINDESINE [Suspect]
     Active Substance: VINDESINE
     Indication: Diffuse large B-cell lymphoma stage IV
     Route: 065
     Dates: start: 2020, end: 2020
  35. VINDESINE [Suspect]
     Active Substance: VINDESINE
     Indication: Metastases to spine
  36. VINDESINE [Suspect]
     Active Substance: VINDESINE
     Indication: Metastases to pancreas
  37. VINDESINE [Suspect]
     Active Substance: VINDESINE
     Indication: Metastases to pleura
  38. VINDESINE [Suspect]
     Active Substance: VINDESINE
     Indication: Metastases to lymph nodes
  39. VINDESINE [Suspect]
     Active Substance: VINDESINE
     Indication: Metastases to abdominal cavity
  40. DEXAMETHASONE [Suspect]
     Active Substance: DEXAMETHASONE
     Indication: Diffuse large B-cell lymphoma stage IV
     Route: 065
     Dates: start: 2020
  41. DEXAMETHASONE [Suspect]
     Active Substance: DEXAMETHASONE
     Indication: Metastases to spine
     Route: 065
     Dates: start: 2020
  42. DEXAMETHASONE [Suspect]
     Active Substance: DEXAMETHASONE
     Indication: Metastases to pancreas
  43. DEXAMETHASONE [Suspect]
     Active Substance: DEXAMETHASONE
     Indication: Metastases to pleura
  44. DEXAMETHASONE [Suspect]
     Active Substance: DEXAMETHASONE
     Indication: Metastases to lymph nodes
  45. DEXAMETHASONE [Suspect]
     Active Substance: DEXAMETHASONE
     Indication: Metastases to abdominal cavity
  46. LENALIDOMIDE [Suspect]
     Active Substance: LENALIDOMIDE
     Indication: Diffuse large B-cell lymphoma stage IV
     Route: 065
     Dates: start: 20201110
  47. LENALIDOMIDE [Suspect]
     Active Substance: LENALIDOMIDE
     Indication: Metastases to spine
     Dosage: 25 MG, QD (FOR 14 DAYS)
     Route: 065
  48. LENALIDOMIDE [Suspect]
     Active Substance: LENALIDOMIDE
     Indication: Metastases to pancreas
  49. LENALIDOMIDE [Suspect]
     Active Substance: LENALIDOMIDE
     Indication: Metastases to pleura
  50. LENALIDOMIDE [Suspect]
     Active Substance: LENALIDOMIDE
     Indication: Metastases to lymph nodes
  51. LENALIDOMIDE [Suspect]
     Active Substance: LENALIDOMIDE
     Indication: Metastases to abdominal cavity
  52. GEMCITABINE [Suspect]
     Active Substance: GEMCITABINE
     Indication: Diffuse large B-cell lymphoma stage IV
     Route: 065
     Dates: start: 20201110
  53. GEMCITABINE [Suspect]
     Active Substance: GEMCITABINE
     Indication: Metastases to spine
  54. GEMCITABINE [Suspect]
     Active Substance: GEMCITABINE
     Indication: Metastases to pancreas
  55. GEMCITABINE [Suspect]
     Active Substance: GEMCITABINE
     Indication: Metastases to pleura
  56. GEMCITABINE [Suspect]
     Active Substance: GEMCITABINE
     Indication: Metastases to lymph nodes
  57. GEMCITABINE [Suspect]
     Active Substance: GEMCITABINE
     Indication: Metastases to abdominal cavity
  58. CISPLATIN [Suspect]
     Active Substance: CISPLATIN
     Indication: Diffuse large B-cell lymphoma stage IV
     Route: 065
     Dates: start: 20201110
  59. CISPLATIN [Suspect]
     Active Substance: CISPLATIN
     Indication: Metastases to spine
  60. CISPLATIN [Suspect]
     Active Substance: CISPLATIN
     Indication: Metastases to pancreas
  61. CISPLATIN [Suspect]
     Active Substance: CISPLATIN
     Indication: Metastases to pleura
  62. CISPLATIN [Suspect]
     Active Substance: CISPLATIN
     Indication: Metastases to lymph nodes
  63. CISPLATIN [Suspect]
     Active Substance: CISPLATIN
     Indication: Metastases to abdominal cavity
  64. FLUCONAZOLE [Concomitant]
     Active Substance: FLUCONAZOLE
     Indication: Infection prophylaxis
     Dosage: 200 MG, QD (DAYS 6-14)
     Route: 048
  65. SULFAMETHOXAZOLE [Concomitant]
     Active Substance: SULFAMETHOXAZOLE
     Indication: Infection prophylaxis
     Dosage: 960 MG, QD, CONSTANTLY
     Route: 048

REACTIONS (12)
  - Disseminated mucormycosis [Recovered/Resolved]
  - Disease progression [Recovered/Resolved]
  - Cough [Recovered/Resolved]
  - Chest discomfort [Recovered/Resolved]
  - Hiccups [Recovered/Resolved]
  - Amnesia [Recovered/Resolved]
  - Anal incontinence [Recovered/Resolved]
  - Urinary incontinence [Recovered/Resolved]
  - Abdominal pain lower [Recovered/Resolved]
  - Haemoptysis [Recovered/Resolved]
  - Pyrexia [Recovered/Resolved]
  - Splenic infarction [Recovered/Resolved]

NARRATIVE: CASE EVENT DATE: 20200101
